FAERS Safety Report 9440422 (Version 1)
Quarter: 2013Q3

REPORT INFORMATION
  Report Type: Spontaneous
  Country: BR (occurrence: BR)
  Receive Date: 20130805
  Receipt Date: 20130805
  Transmission Date: 20140515
  Serious: Yes (Other)
  Sender: FDA-Public Use
  Company Number: BR-PFIZER INC-2013173599

PATIENT
  Age: 57 Year
  Sex: Female

DRUGS (2)
  1. SUTENT [Suspect]
     Indication: RENAL CELL CARCINOMA
     Dosage: 50 MG, CYCLIC (4 PER 2)
     Route: 048
     Dates: start: 20130517, end: 20130606
  2. SUTENT [Suspect]
     Dosage: 50 MG, CYCLIC (4 PER 2)

REACTIONS (14)
  - Tooth infection [Not Recovered/Not Resolved]
  - Disease progression [Unknown]
  - Renal cell carcinoma [Unknown]
  - Hypothyroidism [Unknown]
  - Stomatitis [Unknown]
  - Glossitis [Unknown]
  - Gingival pain [Unknown]
  - Nausea [Unknown]
  - Dyspepsia [Unknown]
  - Migraine [Unknown]
  - Appetite disorder [Unknown]
  - Swelling face [Not Recovered/Not Resolved]
  - Injury associated with device [Not Recovered/Not Resolved]
  - Tooth disorder [Not Recovered/Not Resolved]
